FAERS Safety Report 5114846-8 (Version None)
Quarter: 2006Q3

REPORT INFORMATION
  Report Type: 
  Country: None (occurrence: None)
  Receive Date: 20060926
  Receipt Date: 20060919
  Transmission Date: 20061208
  Serious: Yes (Disabling)
  Sender: FDA-Public Use
  Company Number: JP-BAYER-200611059BYL

PATIENT
  Age: 79 Year
  Sex: Male

DRUGS (11)
  1. ADALAT [Suspect]
     Indication: ESSENTIAL HYPERTENSION
     Dosage: TOTAL DAILY DOSE: 40 MG  UNIT DOSE: 40 MG
     Route: 048
     Dates: start: 20060509, end: 20060710
  2. ADALAT [Suspect]
     Dosage: TOTAL DAILY DOSE: 20 MG  UNIT DOSE: 20 MG
     Route: 048
     Dates: start: 20060711
  3. ASPIRIN [Suspect]
     Dosage: TOTAL DAILY DOSE: 100 MG  UNIT DOSE: 100 MG
     Route: 048
     Dates: start: 20060107
  4. ALLOZYM [Suspect]
     Route: 048
     Dates: start: 20060131
  5. NORVASC [Concomitant]
     Indication: ESSENTIAL HYPERTENSION
     Dosage: TOTAL DAILY DOSE: 10 MG
     Route: 048
     Dates: start: 20060107, end: 20060508
  6. CARDENALIN [Concomitant]
     Indication: ESSENTIAL HYPERTENSION
     Dosage: TOTAL DAILY DOSE: 4 MG
     Route: 048
     Dates: start: 20060410, end: 20060508
  7. CARDENALIN [Concomitant]
     Dosage: TOTAL DAILY DOSE: 8 MG
     Route: 048
     Dates: start: 20060509
  8. HARTAM [Concomitant]
     Route: 048
     Dates: start: 20060107
  9. ARGAMATE [Concomitant]
     Route: 048
     Dates: start: 20060116
  10. MAGNESIUM OXIDE [Concomitant]
     Route: 048
     Dates: start: 20060131
  11. DIOVAN [Concomitant]
     Indication: ESSENTIAL HYPERTENSION
     Dosage: TOTAL DAILY DOSE: 20 MG  UNIT DOSE: 20 MG
     Route: 048
     Dates: start: 20060821, end: 20060904

REACTIONS (3)
  - BLOOD CREATININE INCREASED [None]
  - BLOOD UREA INCREASED [None]
  - RENAL IMPAIRMENT [None]
